FAERS Safety Report 9524583 (Version 2)
Quarter: 2013Q4

REPORT INFORMATION
  Report Type: Spontaneous
  Country: GB (occurrence: None)
  Receive Date: 20130912
  Receipt Date: 20131023
  Transmission Date: 20140711
  Serious: Yes (Other)
  Sender: FDA-Public Use
  Company Number: AUR-APL-2013-07465

PATIENT
  Sex: 0

DRUGS (1)
  1. FLUOXETINE (FLUOXETINE) [Suspect]
     Indication: PRODUCT USED FOR UNKNOWN INDICATION

REACTIONS (6)
  - Malaise [None]
  - Dyspepsia [None]
  - Fatigue [None]
  - Dry skin [None]
  - Pruritus [None]
  - Insomnia [None]
